FAERS Safety Report 4652306-9 (Version None)
Quarter: 2005Q2

REPORT INFORMATION
  Report Type: 
  Country: None (occurrence: None)
  Receive Date: 20050502
  Receipt Date: 20050418
  Transmission Date: 20051028
  Serious: Yes (Death)
  Sender: FDA-Public Use
  Company Number: 141890USA

PATIENT
  Age: 43 Year
  Sex: Female

DRUGS (5)
  1. FLUOXETINE [Suspect]
     Dosage: 60 MILLIGRAM QD
  2. DIVALPROEX SODIUM [Suspect]
     Dosage: 10000 MILLIGRAM BID
  3. QUETIAPINE FUMARATE [Suspect]
     Dosage: 100 MILLIGRAM BID
  4. NALTREXONE [Suspect]
     Dosage: 50 MILLIGRAM QD
  5. CLONAZEPAM [Concomitant]

REACTIONS (15)
  - AIR EMBOLISM [None]
  - ALPHA-1 ANTI-TRYPSIN INCREASED [None]
  - BILE DUCT CANCER [None]
  - CARBON DIOXIDE DECREASED [None]
  - CERULOPLASMIN INCREASED [None]
  - ELECTROMECHANICAL DISSOCIATION [None]
  - HAEMATOCRIT DECREASED [None]
  - HEPATIC STEATOSIS [None]
  - HEPATITIS [None]
  - HEPATITIS CHOLESTATIC [None]
  - PROCEDURAL COMPLICATION [None]
  - PULMONARY EMBOLISM [None]
  - PULMONARY HYPERTENSION [None]
  - SINUS BRADYCARDIA [None]
  - VENTRICULAR FIBRILLATION [None]
